FAERS Safety Report 13690630 (Version 3)
Quarter: 2017Q4

REPORT INFORMATION
  Report Type: Spontaneous
  Country: US (occurrence: US)
  Receive Date: 20170626
  Receipt Date: 20171226
  Transmission Date: 20180320
  Serious: No
  Sender: FDA-Public Use
  Company Number: US-CLOVIS ONCOLOGY-CLO-2017-000183

PATIENT
  Age: 54 Year
  Sex: Female

DRUGS (1)
  1. RUBRACA [Suspect]
     Active Substance: RUCAPARIB CAMSYLATE
     Indication: OVARIAN CANCER
     Dosage: 600 MG, BID
     Route: 048
     Dates: start: 20170226

REACTIONS (16)
  - Vomiting [Unknown]
  - Alanine aminotransferase increased [Unknown]
  - Pruritus [Not Recovered/Not Resolved]
  - Hepatic enzyme increased [Recovering/Resolving]
  - Red blood cell count decreased [Not Recovered/Not Resolved]
  - Abdominal discomfort [Unknown]
  - Blood glucose increased [Not Recovered/Not Resolved]
  - Photosensitivity reaction [Not Recovered/Not Resolved]
  - Photophobia [Recovered/Resolved]
  - Platelet count decreased [Unknown]
  - Constipation [Unknown]
  - Dysgeusia [Not Recovered/Not Resolved]
  - Diarrhoea [Unknown]
  - Rash [Not Recovered/Not Resolved]
  - Fatigue [Not Recovered/Not Resolved]
  - Nausea [Recovering/Resolving]

NARRATIVE: CASE EVENT DATE: 2017
